FAERS Safety Report 25925967 (Version 3)
Quarter: 2025Q4

REPORT INFORMATION
  Report Type: Report from Study
  Country: MX (occurrence: MX)
  Receive Date: 20251015
  Receipt Date: 20251215
  Transmission Date: 20260118
  Serious: Yes (Death, Hospitalization)
  Sender: BAYER HEALTHCARE PHARMACEUTICALS INC.
  Company Number: MX-BAYER-2025A135048

PATIENT
  Age: 36 Year
  Sex: Male

DRUGS (1)
  1. ADEMPAS [Suspect]
     Active Substance: RIOCIGUAT
     Indication: Pulmonary arterial hypertension
     Dosage: 2.5 MG, Q8HR
     Route: 048
     Dates: start: 20250606

REACTIONS (4)
  - Hypotension [Fatal]
  - Blindness [None]
  - Blood potassium increased [None]
  - Cardiac arrest [None]

NARRATIVE: CASE EVENT DATE: 20251009
